FAERS Safety Report 18516944 (Version 1)
Quarter: 2020Q4

REPORT INFORMATION
  Report Type: Spontaneous
  Country: CN (occurrence: CN)
  Receive Date: 20201118
  Receipt Date: 20201118
  Transmission Date: 20210114
  Serious: Yes (Hospitalization, Other)
  Sender: FDA-Public Use
  Company Number: CN-CELGENEUS-CHN-20201102759

PATIENT
  Age: 59 Year
  Sex: Male
  Weight: 63 kg

DRUGS (1)
  1. LENALIDOMIDE [Suspect]
     Active Substance: LENALIDOMIDE
     Indication: PLASMA CELL MYELOMA
     Dosage: 10 MILLIGRAM
     Route: 048
     Dates: start: 20200916, end: 20201006

REACTIONS (1)
  - Agranulocytosis [Recovered/Resolved]

NARRATIVE: CASE EVENT DATE: 20201013
